FAERS Safety Report 25700406 (Version 1)
Quarter: 2025Q3

REPORT INFORMATION
  Report Type: Spontaneous
  Country: US (occurrence: US)
  Receive Date: 20250819
  Receipt Date: 20250819
  Transmission Date: 20251021
  Serious: Yes (Death, Other)
  Sender: AMGEN
  Company Number: US-AMGEN-USASP2025161511

PATIENT

DRUGS (2)
  1. ETANERCEPT [Suspect]
     Active Substance: ETANERCEPT
     Indication: Graft versus host disease
     Route: 065
  2. ETANERCEPT [Suspect]
     Active Substance: ETANERCEPT
     Indication: Off label use

REACTIONS (6)
  - Death [Fatal]
  - Bacteraemia [Unknown]
  - Fungaemia [Unknown]
  - Pneumonia [Unknown]
  - Off label use [Unknown]
  - Cytomegalovirus infection [Unknown]
